FAERS Safety Report 21064621 (Version 1)
Quarter: 2022Q3

REPORT INFORMATION
  Report Type: Report from Study
  Country: AU (occurrence: AU)
  Receive Date: 20220711
  Receipt Date: 20220711
  Transmission Date: 20221027
  Serious: Yes (Hospitalization)
  Sender: FDA-Public Use
  Company Number: AU-PFIZER INC-2020387633

PATIENT
  Age: 52 Year
  Sex: Female
  Weight: 96 kg

DRUGS (5)
  1. ABROCITINIB [Suspect]
     Active Substance: ABROCITINIB
     Indication: Dermatitis atopic
     Dosage: 100 MG, DAILY
     Route: 048
     Dates: start: 20190525, end: 20201005
  2. CETIRIZINE [Concomitant]
     Active Substance: CETIRIZINE HYDROCHLORIDE
     Indication: Seasonal allergy
     Dosage: UNK
     Dates: start: 201601
  3. VENTOLIN [Concomitant]
     Active Substance: ALBUTEROL SULFATE
     Indication: Asthma
     Dosage: UNK
     Dates: start: 1977
  4. VISINE [TETRYZOLINE HYDROCHLORIDE] [Concomitant]
     Indication: Conjunctivitis allergic
     Dosage: UNK
     Dates: start: 20190417
  5. ACETAMINOPHEN [Concomitant]
     Active Substance: ACETAMINOPHEN
     Indication: Osteoarthritis
     Dosage: UNK
     Dates: start: 2016

REACTIONS (1)
  - Herpes zoster disseminated [Recovered/Resolved with Sequelae]

NARRATIVE: CASE EVENT DATE: 20200914
